FAERS Safety Report 9524926 (Version 1)
Quarter: 2013Q3

REPORT INFORMATION
  Report Type: Spontaneous
  Country: US (occurrence: None)
  Receive Date: 20130912
  Receipt Date: 20130912
  Transmission Date: 20140515
  Serious: Yes (Life-Threatening, Disabling, Other)
  Sender: FDA-Public Use
  Company Number: None

PATIENT
  Age: 9 Year
  Sex: Male
  Weight: 28.12 kg

DRUGS (1)
  1. METHYLPHENIDATE [Suspect]
     Route: 048
     Dates: start: 20130907, end: 20130909

REACTIONS (5)
  - Hallucination [None]
  - Eye movement disorder [None]
  - Visual impairment [None]
  - Dyskinesia [None]
  - Product substitution issue [None]
